FAERS Safety Report 9125013 (Version 1)
Quarter: 2013Q1

REPORT INFORMATION
  Report Type: Spontaneous
  Country: US (occurrence: US)
  Receive Date: 20130227
  Receipt Date: 20130227
  Transmission Date: 20140127
  Serious: No
  Sender: FDA-Public Use
  Company Number: US-MYLANLABS-2012S1025351

PATIENT
  Age: 9 Year
  Sex: Male
  Weight: 31.75 kg

DRUGS (4)
  1. MONTELUKAST SODIUM [Suspect]
     Indication: ASTHMA
     Route: 048
     Dates: start: 201209
  2. ZYRTEC [Concomitant]
     Indication: ASTHMA
     Route: 048
     Dates: start: 201210
  3. ALBUTEROL [Concomitant]
     Indication: ASTHMA
     Route: 055
     Dates: start: 201210
  4. STEROIDS [Concomitant]
     Indication: ASTHMA
     Route: 048
     Dates: start: 201210

REACTIONS (2)
  - Drug ineffective [Not Recovered/Not Resolved]
  - Asthma [Not Recovered/Not Resolved]
